FAERS Safety Report 18243862 (Version 1)
Quarter: 2020Q3

REPORT INFORMATION
  Report Type: Report from Study
  Country: CA (occurrence: CA)
  Receive Date: 20200908
  Receipt Date: 20200908
  Transmission Date: 20201103
  Serious: Yes (Other)
  Sender: FDA-Public Use
  Company Number: PHHY2018CA077656

PATIENT
  Age: 40 Year
  Sex: Female

DRUGS (7)
  1. VOLTAREN [Suspect]
     Active Substance: DICLOFENAC SODIUM
     Indication: PRODUCT USED FOR UNKNOWN INDICATION
     Dosage: UNK
     Route: 065
  2. DICLOFENAC [Concomitant]
     Active Substance: DICLOFENAC
     Indication: PRODUCT USED FOR UNKNOWN INDICATION
     Dosage: UNK
     Route: 065
  3. COSENTYX [Suspect]
     Active Substance: SECUKINUMAB
     Indication: PSORIATIC ARTHROPATHY
     Dosage: 150 MG, Q2W
     Route: 058
     Dates: start: 20180725, end: 20200302
  4. ENBREL [Concomitant]
     Active Substance: ETANERCEPT
     Indication: PRODUCT USED FOR UNKNOWN INDICATION
     Dosage: UNK
     Route: 065
     Dates: start: 2017, end: 20180705
  5. CELEBREX [Concomitant]
     Active Substance: CELECOXIB
     Indication: PRODUCT USED FOR UNKNOWN INDICATION
     Dosage: UNK, BID
     Route: 065
  6. NAPROXEN. [Concomitant]
     Active Substance: NAPROXEN
     Indication: PRODUCT USED FOR UNKNOWN INDICATION
     Dosage: UNK
     Route: 065
  7. IBUPROFEN. [Concomitant]
     Active Substance: IBUPROFEN
     Indication: PRODUCT USED FOR UNKNOWN INDICATION
     Dosage: UNK UNK, PRN
     Route: 065

REACTIONS (18)
  - Pyrexia [Unknown]
  - Insomnia [Unknown]
  - Grip strength decreased [Unknown]
  - Drug intolerance [Unknown]
  - Nausea [Unknown]
  - Therapeutic response decreased [Unknown]
  - Abdominal pain [Unknown]
  - Vomiting [Unknown]
  - Chills [Unknown]
  - Arthralgia [Unknown]
  - Gait inability [Unknown]
  - Sacroiliitis [Unknown]
  - Sinusitis [Recovering/Resolving]
  - Psoriatic arthropathy [Unknown]
  - Fatigue [Unknown]
  - Depression [Unknown]
  - Therapeutic product effect incomplete [Unknown]
  - Gait disturbance [Unknown]

NARRATIVE: CASE EVENT DATE: 201808
